FAERS Safety Report 5757355-5 (Version None)
Quarter: 2008Q2

REPORT INFORMATION
  Report Type: 
  Country: None (occurrence: None)
  Receive Date: 20080529
  Receipt Date: 20080516
  Transmission Date: 20081010
  Serious: Yes (Other)
  Sender: FDA-Public Use
  Company Number: 234655J08USA

PATIENT
  Age: 35 Year
  Sex: Female
  Weight: 80.7403 kg

DRUGS (6)
  1. REBIF [Suspect]
     Indication: MULTIPLE SCLEROSIS
     Dosage: 22 MCG; 44 MCG, 3 IN 1 WEEKS, SUBCUTANEOUS
     Route: 058
     Dates: end: 20080508
  2. REBIF [Suspect]
     Indication: MULTIPLE SCLEROSIS
     Dosage: 22 MCG; 44 MCG, 3 IN 1 WEEKS, SUBCUTANEOUS
     Route: 058
     Dates: start: 20071101
  3. PARLODEL [Concomitant]
  4. NAPROXEN [Concomitant]
  5. HYDROCODONE (HYDROCODONE) [Concomitant]
  6. VALIUM [Concomitant]

REACTIONS (5)
  - BLOOD THYROID STIMULATING HORMONE INCREASED [None]
  - FATIGUE [None]
  - PHARYNGOLARYNGEAL PAIN [None]
  - THYROID NEOPLASM [None]
  - WHITE BLOOD CELL COUNT INCREASED [None]
